FAERS Safety Report 7000509-0 (Version None)
Quarter: 2010Q3

REPORT INFORMATION
  Report Type: 
  Country: None (occurrence: None)
  Receive Date: 20100920
  Receipt Date: 20100517
  Transmission Date: 20110219
  Serious: Yes (Other)
  Sender: FDA-Public Use
  Company Number: US-ASTRAZENECA-2007UW09713

PATIENT
  Age: 43 Year
  Sex: Female
  Weight: 86.2 kg

DRUGS (20)
  1. SEROQUEL [Suspect]
     Indication: BIPOLAR DISORDER
     Dosage: 100-800 MG
     Route: 048
     Dates: start: 19980113
  2. SEROQUEL [Suspect]
     Indication: DEPRESSION
     Dosage: 100-800 MG
     Route: 048
     Dates: start: 19980113
  3. SEROQUEL [Suspect]
     Dosage: 50-500 MG EVERY DAY
     Route: 048
     Dates: start: 20050401, end: 20070101
  4. SEROQUEL [Suspect]
     Dosage: 50-500 MG EVERY DAY
     Route: 048
     Dates: start: 20050401, end: 20070101
  5. SEROQUEL [Suspect]
     Dosage: 25-400 MG
     Route: 048
     Dates: start: 20050912
  6. SEROQUEL [Suspect]
     Dosage: 25-400 MG
     Route: 048
     Dates: start: 20050912
  7. RISPERDAL [Suspect]
     Dates: start: 19980113
  8. LAMICTAL [Concomitant]
  9. BUSPAR [Concomitant]
  10. DICYCLOMINE [Concomitant]
  11. PHENERGAN [Concomitant]
  12. VISTARIL [Concomitant]
  13. ATIVAN [Concomitant]
  14. HALDOL [Concomitant]
  15. XANAX [Concomitant]
     Dates: start: 20000428
  16. REMERON [Concomitant]
     Dosage: 30 ONE AND 1/2 AT HS
     Dates: start: 19980113
  17. ZYPREXA [Concomitant]
     Dosage: 10 HS
     Route: 048
     Dates: start: 19990920
  18. CRESTOR [Concomitant]
     Dates: start: 20050927
  19. AMBIEN [Concomitant]
     Dates: start: 20050927
  20. LUNESTA [Concomitant]
     Dates: start: 20050927

REACTIONS (1)
  - PANCREATITIS ACUTE [None]
